FAERS Safety Report 8440320-7 (Version None)
Quarter: 2012Q2

REPORT INFORMATION
  Report Type: 
  Country: None (occurrence: None)
  Receive Date: 20120615
  Receipt Date: 20120607
  Transmission Date: 20120825
  Serious: Yes (Other)
  Sender: FDA-Public Use
  Company Number: CHPA2012SE011918

PATIENT
  Age: 40 Year
  Sex: Female

DRUGS (1)
  1. LAMISIL [Suspect]
     Indication: FUNGAL INFECTION
     Dosage: UNK
     Route: 061
     Dates: start: 20120430, end: 20120501

REACTIONS (5)
  - SKIN DISORDER [None]
  - APPLICATION SITE WARMTH [None]
  - APPLICATION SITE ERYTHEMA [None]
  - BLOOD BLISTER [None]
  - APPLICATION SITE SWELLING [None]
